FAERS Safety Report 25902451 (Version 1)
Quarter: 2025Q4

REPORT INFORMATION
  Report Type: Spontaneous
  Country: US (occurrence: US)
  Receive Date: 20251009
  Receipt Date: 20251009
  Transmission Date: 20260117
  Serious: No
  Sender: Kenvue
  Company Number: US-KENVUE-20250904106

PATIENT
  Sex: Female

DRUGS (2)
  1. WOMENS ROGAINE [Suspect]
     Active Substance: MINOXIDIL
     Indication: Alopecia
     Dosage: LESS THAN 1ML
     Route: 061
     Dates: start: 202508
  2. WOMENS ROGAINE [Suspect]
     Active Substance: MINOXIDIL
     Dosage: LESS THAN 1ML
     Route: 061
     Dates: start: 2025

REACTIONS (3)
  - Hair growth abnormal [Not Recovered/Not Resolved]
  - Underdose [Unknown]
  - Inappropriate schedule of product administration [Unknown]

NARRATIVE: CASE EVENT DATE: 20250101
